FAERS Safety Report 7472275-6 (Version None)
Quarter: 2011Q2

REPORT INFORMATION
  Report Type: 
  Country: None (occurrence: None)
  Receive Date: 20110502
  Receipt Date: 20110422
  Transmission Date: 20111010
  Serious: Yes (Hospitalization)
  Sender: FDA-Public Use
  Company Number: 2011000724

PATIENT
  Age: 83 Year
  Sex: Female

DRUGS (1)
  1. TARCEVA [Suspect]
     Indication: LUNG NEOPLASM MALIGNANT
     Dosage: (MG) ,ORAL
     Route: 048

REACTIONS (4)
  - ACNE [None]
  - BRAIN NEOPLASM [None]
  - RADIATION INJURY [None]
  - DYSPHONIA [None]
